FAERS Safety Report 10684377 (Version 1)
Quarter: 2014Q4

REPORT INFORMATION
  Report Type: Spontaneous
  Country: US (occurrence: None)
  Receive Date: 20141229
  Receipt Date: 20141229
  Transmission Date: 20150529
  Serious: Yes (Other)
  Sender: FDA-Public Use
  Company Number: 2014-US-016607

PATIENT
  Sex: Female
  Weight: 107 kg

DRUGS (6)
  1. XYREM [Suspect]
     Active Substance: SODIUM OXYBATE
     Indication: CATAPLEXY
     Route: 048
     Dates: start: 201208, end: 2012
  2. PROVIGIL [Concomitant]
     Active Substance: MODAFINIL
  3. ADDERALL [Suspect]
     Active Substance: AMPHETAMINE ASPARTATE\AMPHETAMINE SULFATE\DEXTROAMPHETAMINE SACCHARATE\DEXTROAMPHETAMINE SULFATE
     Indication: PRODUCT USED FOR UNKNOWN INDICATION
  4. XYREM [Suspect]
     Active Substance: SODIUM OXYBATE
     Indication: HYPERSOMNIA
     Route: 048
     Dates: start: 201208, end: 2012
  5. IRON (FERROUS SULFATE) [Concomitant]
  6. XYREM [Suspect]
     Active Substance: SODIUM OXYBATE
     Indication: NARCOLEPSY
     Route: 048
     Dates: start: 201208, end: 2012

REACTIONS (18)
  - Movement disorder [None]
  - Abnormal sleep-related event [None]
  - Sleep paralysis [None]
  - Headache [None]
  - Anxiety [None]
  - Memory impairment [None]
  - Fatigue [None]
  - Off label use [None]
  - Tourette^s disorder [None]
  - Sleep apnoea syndrome [None]
  - Seizure like phenomena [None]
  - Muscle twitching [None]
  - Injury [None]
  - Hypnopompic hallucination [None]
  - Restless legs syndrome [None]
  - Somnolence [None]
  - Paraesthesia [None]
  - Screaming [None]
